FAERS Safety Report 4767093-3 (Version None)
Quarter: 2005Q3

REPORT INFORMATION
  Report Type: 
  Country: None (occurrence: None)
  Receive Date: 20050908
  Receipt Date: 20050824
  Transmission Date: 20060218
  Serious: Yes (Life-Threatening, Hospitalization)
  Sender: FDA-Public Use
  Company Number: 2005P1000319

PATIENT
  Age: 56 Year
  Sex: Male

DRUGS (9)
  1. RETEVASE [Suspect]
     Indication: ACUTE MYOCARDIAL INFARCTION
     Dosage: UNKNOWN; IV
     Route: 042
     Dates: start: 20050724
  2. ASPIRIN [Concomitant]
  3. LOPRESSOR [Concomitant]
  4. LIPITOR /NET/ [Concomitant]
  5. POTASSIUM CHLORIDE [Concomitant]
  6. LOVENOX [Concomitant]
  7. MORPHINE [Concomitant]
  8. BIVALIRUDIN [Concomitant]
  9. ENOXAPARIN SODIUM [Concomitant]

REACTIONS (11)
  - ARTERIOGRAM CORONARY ABNORMAL [None]
  - ARTERY DISSECTION [None]
  - ATRIOVENTRICULAR BLOCK COMPLETE [None]
  - CORONARY ARTERIAL STENT INSERTION [None]
  - CORONARY ARTERY SURGERY [None]
  - HAEMATOCRIT DECREASED [None]
  - HAEMOGLOBIN DECREASED [None]
  - MYOCARDIAL INFARCTION [None]
  - OPERATIVE HAEMORRHAGE [None]
  - PLATELET COUNT DECREASED [None]
  - POST PROCEDURAL COMPLICATION [None]
